FAERS Safety Report 12524792 (Version 1)
Quarter: 2016Q3

REPORT INFORMATION
  Report Type: Spontaneous
  Country: FR (occurrence: FR)
  Receive Date: 20160704
  Receipt Date: 20160704
  Transmission Date: 20161109
  Serious: Yes (Life-Threatening, Hospitalization, Other)
  Sender: FDA-Public Use
  Company Number: FR-PFIZER INC-2016325524

PATIENT
  Age: 69 Year
  Sex: Male

DRUGS (8)
  1. KARDEGIC [Concomitant]
     Active Substance: ASPIRIN LYSINE
     Indication: BENIGN PROSTATIC HYPERPLASIA
     Dosage: UNK
  2. LANTUS [Concomitant]
     Active Substance: INSULIN GLARGINE
     Indication: TYPE 1 DIABETES MELLITUS
     Dosage: UNK
  3. ATENOLOL. [Concomitant]
     Active Substance: ATENOLOL
     Indication: HYPERTENSION
     Dosage: UNK
  4. MANIDIPINE [Concomitant]
     Active Substance: MANIDIPINE
     Indication: HYPERTENSION
     Dosage: UNK
  5. ORELOX [Suspect]
     Active Substance: CEFPODOXIME
     Dosage: UNK
     Route: 048
     Dates: start: 20160415, end: 20160423
  6. NOVORAPID [Concomitant]
     Active Substance: INSULIN ASPART
     Indication: TYPE 1 DIABETES MELLITUS
     Dosage: UNK
  7. MECIR [Concomitant]
     Active Substance: TAMSULOSIN HYDROCHLORIDE
     Indication: BENIGN PROSTATIC HYPERPLASIA
     Dosage: UNK
  8. ORELOX [Suspect]
     Active Substance: CEFPODOXIME
     Indication: LUNG DISORDER
     Dosage: UNK
     Route: 048
     Dates: start: 201604, end: 201604

REACTIONS (2)
  - Agranulocytosis [Recovered/Resolved]
  - Pseudomonal sepsis [Recovering/Resolving]

NARRATIVE: CASE EVENT DATE: 20160428
